FAERS Safety Report 21303523 (Version 3)
Quarter: 2023Q2

REPORT INFORMATION
  Report Type: Spontaneous
  Country: US (occurrence: US)
  Receive Date: 20220907
  Receipt Date: 20230510
  Transmission Date: 20230721
  Serious: No
  Sender: FDA-Public Use
  Company Number: US-INCYTE CORPORATION-2022IN008395

PATIENT

DRUGS (2)
  1. JAKAFI [Suspect]
     Active Substance: RUXOLITINIB
     Indication: Acute lymphocytic leukaemia
     Dosage: 60 MILLIGRAM, BID
     Route: 048
     Dates: start: 20220701
  2. JAKAFI [Suspect]
     Active Substance: RUXOLITINIB
     Dosage: 60 MILLIGRAM, BID
     Route: 048
     Dates: start: 20220608

REACTIONS (8)
  - COVID-19 [Unknown]
  - Off label use [Unknown]
  - Prescribed overdose [Unknown]
  - Insomnia [Unknown]
  - Vomiting [Unknown]
  - Salivary hypersecretion [Unknown]
  - Nausea [Unknown]
  - Bone pain [Unknown]

NARRATIVE: CASE EVENT DATE: 20220701
